FAERS Safety Report 4709407-6 (Version None)
Quarter: 2005Q3

REPORT INFORMATION
  Report Type: 
  Country: None (occurrence: None)
  Receive Date: 20050708
  Receipt Date: 20050627
  Transmission Date: 20060218
  Serious: Yes (Other)
  Sender: FDA-Public Use
  Company Number: PHBS2005HR09276

PATIENT
  Age: 53 Year
  Sex: Female
  Weight: 69 kg

DRUGS (1)
  1. ESTRADERM [Suspect]
     Indication: MENOPAUSE
     Dosage: 50 ESTR - 250 NORE UG/DAY
     Route: 062
     Dates: start: 20050527, end: 20050624

REACTIONS (3)
  - CYST [None]
  - METRORRHAGIA [None]
  - OEDEMA PERIPHERAL [None]
